FAERS Safety Report 4634776-5 (Version None)
Quarter: 2005Q2

REPORT INFORMATION
  Report Type: 
  Country: None (occurrence: None)
  Receive Date: 20050412
  Receipt Date: 20050407
  Transmission Date: 20051028
  Serious: Yes (Hospitalization, Other)
  Sender: FDA-Public Use
  Company Number: FABR-11054

PATIENT
  Age: 48 Year
  Sex: Female
  Weight: 62.5964 kg

DRUGS (4)
  1. FABRAZYME [Suspect]
     Indication: FABRY'S DISEASE
     Dosage: 70 MG Q2WKS IV
     Route: 042
     Dates: start: 20050208
  2. LISINOPRIL [Concomitant]
  3. LEXAPRO [Concomitant]
  4. KLONIPIN [Concomitant]

REACTIONS (4)
  - ASTHENIA [None]
  - CARDIAC ARREST [None]
  - CARDIAC PACEMAKER INSERTION [None]
  - SYNCOPE [None]
